FAERS Safety Report 4576639-X (Version None)
Quarter: 2005Q1

REPORT INFORMATION
  Report Type: 
  Country: None (occurrence: None)
  Receive Date: 20050127
  Receipt Date: 20041005
  Transmission Date: 20050727
  Serious: No
  Sender: FDA-Public Use
  Company Number: USA041080325

PATIENT
  Age: 12 Year
  Sex: Male
  Weight: 59 kg

DRUGS (1)
  1. STRATTERA [Suspect]
     Indication: ATTENTION DEFICIT/HYPERACTIVITY DISORDER
     Dosage: 60 MG AT BEDTIME
     Dates: start: 20030101

REACTIONS (5)
  - DRUG INEFFECTIVE [None]
  - FLUSHING [None]
  - LETHARGY [None]
  - NAUSEA [None]
  - STOMACH DISCOMFORT [None]
